FAERS Safety Report 11702519 (Version 1)
Quarter: 2015Q4

REPORT INFORMATION
  Report Type: Spontaneous
  Country: US (occurrence: US)
  Receive Date: 20151105
  Receipt Date: 20151105
  Transmission Date: 20160304
  Serious: Yes (Life-Threatening, Hospitalization, Other)
  Sender: FDA-Public Use
  Company Number: US-ASTRAZENECA-2015SF05356

PATIENT
  Age: 18255 Day
  Sex: Male
  Weight: 89.5 kg

DRUGS (1)
  1. SEROQUEL [Suspect]
     Active Substance: QUETIAPINE FUMARATE
     Route: 048

REACTIONS (16)
  - Depression [Recovered/Resolved]
  - Herpes simplex [Recovered/Resolved]
  - Suicidal ideation [Unknown]
  - Homicidal ideation [Unknown]
  - Drug dependence [Unknown]
  - Delusion [Unknown]
  - Drug abuse [Recovered/Resolved]
  - Alcohol use [Unknown]
  - Suicide attempt [Unknown]
  - Substance use [Unknown]
  - Insomnia [Unknown]
  - Disturbance in attention [Unknown]
  - Asthenia [Unknown]
  - Feeling guilty [Unknown]
  - Drug abuse [Unknown]
  - Bipolar I disorder [Unknown]

NARRATIVE: CASE EVENT DATE: 20141003
